FAERS Safety Report 20120290 (Version 1)
Quarter: 2021Q4

REPORT INFORMATION
  Report Type: Spontaneous
  Country: CN (occurrence: CN)
  Receive Date: 20211126
  Receipt Date: 20211126
  Transmission Date: 20220303
  Serious: Yes (Hospitalization, Other)
  Sender: FDA-Public Use
  Company Number: CN-ABBVIE-21K-035-4177083-00

PATIENT
  Age: 49 Year
  Sex: Female
  Weight: 71 kg

DRUGS (5)
  1. VALPROATE SODIUM [Suspect]
     Active Substance: VALPROATE SODIUM
     Indication: Bipolar disorder
     Route: 048
     Dates: start: 20200617, end: 20200625
  2. VALPROATE SODIUM [Suspect]
     Active Substance: VALPROATE SODIUM
     Indication: Mania
  3. OLANZAPINE [Suspect]
     Active Substance: OLANZAPINE
     Indication: Bipolar disorder
     Route: 048
     Dates: start: 20200613, end: 20200624
  4. OLANZAPINE [Suspect]
     Active Substance: OLANZAPINE
     Indication: Mania
     Route: 048
     Dates: start: 20200624, end: 2020
  5. OLANZAPINE [Suspect]
     Active Substance: OLANZAPINE
     Route: 048
     Dates: start: 20200625

REACTIONS (6)
  - Hyperuricaemia [Recovering/Resolving]
  - Akathisia [Recovering/Resolving]
  - Blood prolactin increased [Recovering/Resolving]
  - Cognitive disorder [Recovering/Resolving]
  - Somnolence [Recovering/Resolving]
  - Asthenia [Recovering/Resolving]

NARRATIVE: CASE EVENT DATE: 20200624
